FAERS Safety Report 12018060 (Version 1)
Quarter: 2016Q1

REPORT INFORMATION
  Report Type: Report from Study
  Country: US (occurrence: US)
  Receive Date: 20160205
  Receipt Date: 20160205
  Transmission Date: 20160526
  Serious: Yes (Other)
  Sender: FDA-Public Use
  Company Number: US-ABBVIE-15K-163-1452985-00

PATIENT
  Sex: Female
  Weight: 67.19 kg

DRUGS (11)
  1. HUMIRA [Suspect]
     Active Substance: ADALIMUMAB
     Indication: CROHN^S DISEASE
     Dosage: LOADING DOSE
     Route: 058
     Dates: start: 201401, end: 201401
  2. LEXAPRO [Concomitant]
     Active Substance: ESCITALOPRAM OXALATE
     Indication: DEPRESSION
  3. LIPITOR [Concomitant]
     Active Substance: ATORVASTATIN CALCIUM
     Indication: PRODUCT USED FOR UNKNOWN INDICATION
  4. MULTIVITAMIN [Concomitant]
     Active Substance: VITAMINS
     Indication: PRODUCT USED FOR UNKNOWN INDICATION
  5. HUMIRA [Suspect]
     Active Substance: ADALIMUMAB
     Dosage: TWO WEEKS AFTER 80MG DOSE
     Route: 058
     Dates: start: 2014
  6. IMURAN [Suspect]
     Active Substance: AZATHIOPRINE
     Indication: CROHN^S DISEASE
     Route: 065
  7. CALCIUM [Concomitant]
     Active Substance: CALCIUM
     Indication: PRODUCT USED FOR UNKNOWN INDICATION
  8. CALCIUM [Concomitant]
     Active Substance: CALCIUM
     Indication: MINERAL SUPPLEMENTATION
  9. SODIUM IODIDE I 131 [Suspect]
     Active Substance: SODIUM IODIDE I-131
     Indication: HYPERTHYROIDISM
     Route: 065
     Dates: start: 201507
  10. HUMIRA [Suspect]
     Active Substance: ADALIMUMAB
     Dosage: TWO WEEKS AFTER 160MG DOSE
     Route: 058
     Dates: start: 2014, end: 2014
  11. MULTIVITAMIN [Concomitant]
     Active Substance: VITAMINS
     Indication: PRODUCT USED FOR UNKNOWN INDICATION

REACTIONS (10)
  - Fatigue [Not Recovered/Not Resolved]
  - Rash erythematous [Not Recovered/Not Resolved]
  - Squamous cell carcinoma [Recovered/Resolved]
  - Basal cell carcinoma [Recovered/Resolved]
  - Hyperthyroidism [Recovering/Resolving]
  - Tremor [Recovered/Resolved]
  - Nervousness [Recovered/Resolved]
  - Onycholysis [Not Recovered/Not Resolved]
  - Arthritis [Not Recovered/Not Resolved]
  - Immunosuppression [Unknown]

NARRATIVE: CASE EVENT DATE: 2014
